FAERS Safety Report 25315407 (Version 2)
Quarter: 2025Q2

REPORT INFORMATION
  Report Type: Report from Study
  Country: CA (occurrence: CA)
  Receive Date: 20250514
  Receipt Date: 20250519
  Transmission Date: 20250716
  Serious: Yes (Hospitalization, Other)
  Sender: ABBVIE
  Company Number: CA-ABBVIE-6276542

PATIENT
  Age: 86 Year
  Sex: Male

DRUGS (1)
  1. LUPRON [Suspect]
     Active Substance: LEUPROLIDE ACETATE
     Indication: Prostate cancer
     Dosage: FORM STRENGTH 22.5 MG POWDER AND SOLVENT FOR SOLUTION FOR INJECTION IN PRE-FILLED SYRINGE
     Route: 030
     Dates: start: 20231024

REACTIONS (8)
  - Intestinal haemorrhage [Recovered/Resolved]
  - Inappropriate schedule of product administration [Unknown]
  - Diverticulitis [Unknown]
  - Gait disturbance [Unknown]
  - Fatigue [Unknown]
  - Asthenia [Unknown]
  - Dry skin [Unknown]
  - Gastroenteritis [Recovered/Resolved]

NARRATIVE: CASE EVENT DATE: 20241101
